FAERS Safety Report 19899255 (Version 1)
Quarter: 2021Q3

REPORT INFORMATION
  Report Type: Spontaneous
  Country: CN (occurrence: CN)
  Receive Date: 20210930
  Receipt Date: 20210930
  Transmission Date: 20211014
  Serious: Yes (Hospitalization, Other)
  Sender: FDA-Public Use
  Company Number: CN-009507513-2109CHN006129

PATIENT
  Age: 79 Year
  Sex: Female
  Weight: 40 kg

DRUGS (1)
  1. TIENAM [Suspect]
     Active Substance: CILASTATIN SODIUM\IMIPENEM
     Indication: ANTI-INFECTIVE THERAPY
     Dosage: 1 G, TID
     Route: 041
     Dates: start: 20210906, end: 20210909

REACTIONS (4)
  - Hallucination [Unknown]
  - Malignant neoplasm progression [Unknown]
  - Dysphoria [Unknown]
  - Disorganised speech [Unknown]

NARRATIVE: CASE EVENT DATE: 202109
